FAERS Safety Report 4413573-X (Version None)
Quarter: 2004Q3

REPORT INFORMATION
  Report Type: 
  Country: None (occurrence: None)
  Receive Date: 20040729
  Receipt Date: 20040721
  Transmission Date: 20050211
  Serious: Yes (Hospitalization)
  Sender: FDA-Public Use
  Company Number: 2004-07-0358

PATIENT
  Age: 68 Year
  Sex: Female
  Weight: 50 kg

DRUGS (4)
  1. REBETOL [Suspect]
     Indication: HEPATITIS C
     Dosage: 600 MG ORAL
     Route: 048
     Dates: start: 20030313, end: 20030903
  2. INTRON A [Suspect]
     Indication: HEPATITIS C
     Dosage: SEE IMAGE
     Route: 030
     Dates: start: 20030313, end: 20030903
  3. INTRON A [Suspect]
     Indication: HEPATITIS C
     Dosage: SEE IMAGE
     Route: 030
     Dates: start: 20031127, end: 20040430
  4. NIFEDIPINE [Concomitant]

REACTIONS (5)
  - APHASIA [None]
  - CEREBRAL HAEMORRHAGE [None]
  - DYSARTHRIA [None]
  - GRIP STRENGTH DECREASED [None]
  - HEMIPLEGIA [None]
